FAERS Safety Report 18228790 (Version 3)
Quarter: 2020Q3

REPORT INFORMATION
  Report Type: Spontaneous
  Country: AU (occurrence: AU)
  Receive Date: 20200903
  Receipt Date: 20200921
  Transmission Date: 20201103
  Serious: Yes (Hospitalization, Other)
  Sender: FDA-Public Use
  Company Number: AU-MYLANLABS-2020M1066402

PATIENT
  Age: 64 Year
  Sex: Male

DRUGS (8)
  1. CLOZARIL [Suspect]
     Active Substance: CLOZAPINE
     Indication: SCHIZOPHRENIA
     Dosage: UNK
     Route: 048
     Dates: start: 20200619, end: 20200710
  2. CLOZARIL [Suspect]
     Active Substance: CLOZAPINE
     Dosage: 200 MILLIGRAM
     Dates: start: 20200710
  3. CLOZARIL [Suspect]
     Active Substance: CLOZAPINE
     Dosage: UNK
     Dates: start: 20200624
  4. CLOZARIL [Suspect]
     Active Substance: CLOZAPINE
     Dosage: UNK
     Route: 048
     Dates: start: 20200908
  5. MOVICOL [Concomitant]
     Active Substance: POLYETHYLENE GLYCOL 3350\POTASSIUM CHLORIDE\SODIUM BICARBONATE\SODIUM CHLORIDE
     Dosage: 1 SATCHET, BD
  6. LORAZEPAM. [Concomitant]
     Active Substance: LORAZEPAM
     Dosage: 0.5?1 MG 2 HOURLY MAX 4 MG, PM
  7. LORAZEPAM. [Concomitant]
     Active Substance: LORAZEPAM
     Dosage: 0.5 MILLIGRAM, AM (MANE)
  8. NICOTINE. [Concomitant]
     Active Substance: NICOTINE
     Dosage: 21 MILLIGRAM, QD (21 MG/24 HR)

REACTIONS (12)
  - Schizophrenia [Unknown]
  - Pyrexia [Unknown]
  - C-reactive protein increased [Not Recovered/Not Resolved]
  - Left ventricular hypertrophy [Unknown]
  - Myocarditis [Unknown]
  - Troponin increased [Recovered/Resolved]
  - Anion gap increased [Recovered/Resolved]
  - Platelet count increased [Recovered/Resolved]
  - Chest pain [Unknown]
  - Emphysema [Unknown]
  - Electrocardiogram abnormal [Unknown]
  - Arteriosclerosis coronary artery [Unknown]

NARRATIVE: CASE EVENT DATE: 2020
